FAERS Safety Report 18062303 (Version 2)
Quarter: 2020Q3

REPORT INFORMATION
  Report Type: Spontaneous
  Country: US (occurrence: US)
  Receive Date: 20200723
  Receipt Date: 20200817
  Transmission Date: 20201103
  Serious: Yes (Hospitalization, Other)
  Sender: FDA-Public Use
  Company Number: US-ABBVIE-20K-163-3495535-00

PATIENT
  Age: 43 Year
  Sex: Male

DRUGS (9)
  1. VALPROIC ACID. [Suspect]
     Active Substance: VALPROIC ACID
     Indication: DRUG RESISTANCE
     Route: 042
  2. ZONISAMIDE. [Suspect]
     Active Substance: ZONISAMIDE
     Indication: SEIZURE
     Route: 065
  3. ZONISAMIDE. [Suspect]
     Active Substance: ZONISAMIDE
     Route: 065
  4. LORAZEPAM. [Concomitant]
     Active Substance: LORAZEPAM
     Indication: STATUS EPILEPTICUS
  5. VALPROIC ACID. [Suspect]
     Active Substance: VALPROIC ACID
     Indication: SEIZURE
     Route: 042
  6. ZONISAMIDE. [Suspect]
     Active Substance: ZONISAMIDE
     Indication: PARTIAL SEIZURES
     Route: 065
  7. LEVETIRACETAM. [Concomitant]
     Active Substance: LEVETIRACETAM
     Indication: SEIZURE
  8. ZONISAMIDE. [Suspect]
     Active Substance: ZONISAMIDE
     Route: 065
  9. VALPROIC ACID. [Suspect]
     Active Substance: VALPROIC ACID
     Indication: STATUS EPILEPTICUS
     Route: 042

REACTIONS (19)
  - Aminoaciduria [Recovering/Resolving]
  - Weight increased [Unknown]
  - Memory impairment [Recovering/Resolving]
  - Respiratory distress [Recovering/Resolving]
  - Abulia [Recovering/Resolving]
  - Metabolic acidosis [Recovering/Resolving]
  - Dyscalculia [Recovering/Resolving]
  - Stupor [Recovering/Resolving]
  - Respiratory disorder [Recovering/Resolving]
  - Perseveration [Recovering/Resolving]
  - Confusional state [Recovering/Resolving]
  - Pneumonia [Recovering/Resolving]
  - Cytotoxic oedema [Recovering/Resolving]
  - Frontotemporal dementia [Recovering/Resolving]
  - Anticonvulsant drug level below therapeutic [Recovering/Resolving]
  - Drug interaction [Recovering/Resolving]
  - Lethargy [Recovering/Resolving]
  - Amnesia [Recovering/Resolving]
  - Hyperammonaemic encephalopathy [Recovering/Resolving]
